FAERS Safety Report 4624920-8 (Version None)
Quarter: 2005Q2

REPORT INFORMATION
  Report Type: 
  Country: None (occurrence: None)
  Receive Date: 20050401
  Receipt Date: 20050104
  Transmission Date: 20051028
  Serious: Yes (Hospitalization, Other)
  Sender: FDA-Public Use
  Company Number: 200510091US

PATIENT
  Age: 77 Year
  Sex: Male

DRUGS (10)
  1. TAXOTERE [Suspect]
     Indication: PROSTATE CANCER
     Dates: start: 20040212, end: 20041129
  2. ZOMETA [Suspect]
     Indication: BONE DISORDER
     Dates: start: 20040325, end: 20041213
  3. ZOMETA [Suspect]
     Indication: METASTATIC NEOPLASM
     Dates: start: 20040325, end: 20041213
  4. ARANESP [Concomitant]
     Dates: start: 20041115, end: 20041115
  5. PREDNISONE [Concomitant]
     Dosage: DOSE: UNK
  6. PRILOSEC [Concomitant]
     Dosage: DOSE: UNK
  7. I.V. SOLUTIONS [Concomitant]
     Dosage: DOSE: UNK
  8. PERCOCET [Concomitant]
     Dosage: DOSE: UNK
  9. AMBIEN [Concomitant]
     Dosage: DOSE: UNK
  10. LEVAQUIN [Concomitant]
     Dosage: DOSE: UNK

REACTIONS (8)
  - ANAEMIA [None]
  - ASPARTATE AMINOTRANSFERASE INCREASED [None]
  - BLOOD FIBRINOGEN DECREASED [None]
  - CYSTITIS HAEMORRHAGIC [None]
  - HAEMATURIA [None]
  - LIVER DISORDER [None]
  - THROMBOCYTOPENIA [None]
  - UROSEPSIS [None]
